FAERS Safety Report 8978087 (Version 1)
Quarter: 2012Q4

REPORT INFORMATION
  Report Type: 
  Country: US (occurrence: US)
  Receive Date: 20121220
  Receipt Date: 20121220
  Transmission Date: 20130627
  Serious: Yes (Other)
  Sender: FDA-Public Use
  Company Number: PHHY2012US111290

PATIENT
  Age: 73 Year
  Sex: Male
  Weight: 76.19 kg

DRUGS (17)
  1. GENTEAL GEL [Suspect]
     Dosage: UNK UKN, QID
     Dates: start: 2002
  2. ULTRAM ER [Concomitant]
     Dosage: 200 mg
     Route: 048
  3. PROSCAR [Concomitant]
     Dosage: 1 DF (at night)
     Route: 048
  4. NITROSTAT [Concomitant]
     Dosage: 0.4 mg,
     Route: 048
  5. LASIX [Concomitant]
     Dosage: 20 mg, QD
     Route: 048
  6. ASPIRIN [Concomitant]
     Dosage: 81 mg, QD
     Route: 048
  7. CALCIUM CARBONATE [Concomitant]
     Route: 048
  8. ISORDIL [Concomitant]
     Dosage: 2.5 DF, daily
     Route: 048
  9. ALTACE [Concomitant]
     Dosage: 2 DF, daily
     Route: 048
  10. BETAPACE [Concomitant]
     Dosage: 80 mg, Q12H
     Route: 048
  11. ATIVAN [Concomitant]
     Dosage: 1 DF, daily
     Route: 048
  12. NORVASC [Concomitant]
     Dosage: 2 DF, daily
     Route: 048
  13. PRILOSEC [Concomitant]
     Dosage: 1 DF, QD
     Route: 048
  14. MICROZIDE [Concomitant]
     Dosage: 1 DF, QD (at noon)
     Route: 048
  15. ZOCOR [Concomitant]
     Dosage: 40 mg, QD (at hs)
     Route: 048
  16. PLAVIX [Concomitant]
     Dosage: 1 DF, QD
     Route: 048
  17. SIMETHICONE [Concomitant]
     Dosage: 125 mg, Q6H (PRN)

REACTIONS (1)
  - Eye infection bacterial [Unknown]
